FAERS Safety Report 4964383-6 (Version None)
Quarter: 2006Q1

REPORT INFORMATION
  Report Type: 
  Country: None (occurrence: None)
  Receive Date: 20060331
  Receipt Date: 20060321
  Transmission Date: 20060701
  Serious: No
  Sender: FDA-Public Use
  Company Number: 06H-114-0306826-00

PATIENT
  Age: 15 Year
  Sex: Male

DRUGS (4)
  1. PROPOFOL [Suspect]
     Indication: SEDATIVE THERAPY
     Dosage: INFUSION
  2. DOPAMINE [Concomitant]
  3. NOREPINEPHRINE [Concomitant]
  4. MANNITOL [Concomitant]

REACTIONS (1)
  - PROPOFOL INFUSION SYNDROME [None]
